FAERS Safety Report 6036440-7 (Version None)
Quarter: 2009Q1

REPORT INFORMATION
  Report Type: 
  Country: None (occurrence: None)
  Receive Date: 20090112
  Receipt Date: 20081229
  Transmission Date: 20090719
  Serious: Yes (Hospitalization, Other)
  Sender: FDA-Public Use
  Company Number: KV200801467

PATIENT
  Age: 75 Year
  Sex: Male
  Weight: 74.8 kg

DRUGS (6)
  1. ISOSORBIDE MONONITRATE [Suspect]
     Indication: CHEST PAIN
     Dosage: 60 MG, QD, ORAL
     Route: 048
     Dates: start: 20030101
  2. POTASSIUM CHLORIDE [Concomitant]
  3. DIURETICS [Concomitant]
  4. CRESTOR [Concomitant]
  5. MECLIZINE [Concomitant]
  6. ASIPIRN(ACETYLSALICYLIC ACID) [Concomitant]

REACTIONS (4)
  - MYOCARDIAL INFARCTION [None]
  - NECK PAIN [None]
  - PRODUCT QUALITY ISSUE [None]
  - STENT PLACEMENT [None]
